FAERS Safety Report 7712277-5 (Version None)
Quarter: 2011Q3

REPORT INFORMATION
  Report Type: 
  Country: None (occurrence: None)
  Receive Date: 20110826
  Receipt Date: 20110817
  Transmission Date: 20111222
  Serious: Yes (Hospitalization)
  Sender: FDA-Public Use
  Company Number: US-NAPPMUNDI-USA-2010-0052130

PATIENT
  Age: 70 Year
  Sex: Female
  Weight: 63.492 kg

DRUGS (6)
  1. OXYCODONE HCL [Concomitant]
     Indication: BREAKTHROUGH PAIN
     Dosage: 5 MG, UNK
  2. TOPROL-XL [Concomitant]
     Indication: PRODUCT USED FOR UNKNOWN INDICATION
     Dosage: 100 UNK, UNK
  3. ZOLOFT [Concomitant]
     Indication: PRODUCT USED FOR UNKNOWN INDICATION
     Dosage: 100 UNK, UNK
  4. HYZAAR [Concomitant]
     Indication: PRODUCT USED FOR UNKNOWN INDICATION
  5. OXYCONTIN [Suspect]
     Indication: NECK PAIN
     Dosage: 20 MG, BID
     Route: 048
     Dates: start: 20100817
  6. OXYCONTIN [Suspect]
     Indication: BACK PAIN

REACTIONS (11)
  - CONSTIPATION [None]
  - MALAISE [None]
  - DECREASED APPETITE [None]
  - DRUG INEFFECTIVE [None]
  - DRUG WITHDRAWAL SYNDROME [None]
  - MUSCLE TWITCHING [None]
  - BLOOD PRESSURE ABNORMAL [None]
  - NAUSEA [None]
  - DRUG SCREEN NEGATIVE [None]
  - HEADACHE [None]
  - BLOOD POTASSIUM DECREASED [None]
